FAERS Safety Report 18905593 (Version 1)
Quarter: 2021Q1

REPORT INFORMATION
  Report Type: Spontaneous
  Country: US (occurrence: US)
  Receive Date: 20210217
  Receipt Date: 20210217
  Transmission Date: 20210420
  Serious: No
  Sender: FDA-Public Use
  Company Number: US-JNJFOC-20210212916

PATIENT
  Sex: Male

DRUGS (1)
  1. MENS ROGAINE EXTRA STRENGTH [Suspect]
     Active Substance: MINOXIDIL
     Indication: ALOPECIA
     Dosage: DOSE: ABOUT A PALM OF HANDS?LAST USE DATE: JAN?2021
     Route: 061
     Dates: start: 202002

REACTIONS (5)
  - Application site pruritus [Unknown]
  - Application site exfoliation [Unknown]
  - Inappropriate schedule of product administration [Unknown]
  - Application site dryness [Unknown]
  - Incorrect dose administered [Unknown]

NARRATIVE: CASE EVENT DATE: 202002
